FAERS Safety Report 11932319 (Version 1)
Quarter: 2016Q1

REPORT INFORMATION
  Report Type: Spontaneous
  Country: US (occurrence: US)
  Receive Date: 20160120
  Receipt Date: 20160120
  Transmission Date: 20160526
  Serious: Yes (Other)
  Sender: FDA-Public Use
  Company Number: US-SA-2015SA069138

PATIENT
  Sex: Male

DRUGS (1)
  1. THYMOGLOBULIN [Suspect]
     Active Substance: LAPINE T-LYMPHOCYTE IMMUNE GLOBULIN
     Route: 065
     Dates: start: 20150508

REACTIONS (1)
  - Infection in an immunocompromised host [Unknown]
